FAERS Safety Report 20439177 (Version 1)
Quarter: 2022Q1

REPORT INFORMATION
  Report Type: Spontaneous
  Country: US (occurrence: None)
  Receive Date: 20220204
  Receipt Date: 20220204
  Transmission Date: 20220423
  Serious: Yes (Hospitalization)
  Sender: FDA-Public Use
  Company Number: None

PATIENT
  Age: 77 Year
  Sex: Female

DRUGS (1)
  1. OPSUMIT [Suspect]
     Active Substance: MACITENTAN
     Indication: Pulmonary arterial hypertension
     Dates: start: 20170329

REACTIONS (5)
  - Respiratory failure [None]
  - Right ventricular failure [None]
  - Interstitial lung disease [None]
  - Condition aggravated [None]
  - Pulmonary oedema [None]

NARRATIVE: CASE EVENT DATE: 20220119
